FAERS Safety Report 7237347-X (Version None)
Quarter: 2011Q1

REPORT INFORMATION
  Report Type: 
  Country: None (occurrence: None)
  Receive Date: 20110121
  Receipt Date: 20101118
  Transmission Date: 20110831
  Serious: No
  Sender: FDA-Public Use
  Company Number: A0893251A

PATIENT
  Age: 80 Year
  Sex: Female

DRUGS (3)
  1. MULTIVITAMIN [Concomitant]
  2. ATENOLOL [Concomitant]
  3. MEPRON [Suspect]
     Dosage: 1TSP TWICE PER DAY
     Route: 048
     Dates: start: 20101101

REACTIONS (1)
  - DYSPHONIA [None]
